FAERS Safety Report 24560348 (Version 2)
Quarter: 2024Q4

REPORT INFORMATION
  Report Type: Spontaneous
  Country: GB (occurrence: GB)
  Receive Date: 20241029
  Receipt Date: 20241107
  Transmission Date: 20250114
  Serious: Yes (Hospitalization)
  Sender: MYLAN
  Company Number: GB-MYLANLABS-2024M1096720

PATIENT
  Age: 62 Year
  Sex: Male

DRUGS (4)
  1. CLOZARIL [Suspect]
     Active Substance: CLOZAPINE
     Indication: Schizophrenia
     Dosage: UNK
     Route: 048
     Dates: start: 20010701, end: 20241010
  2. CLOZARIL [Suspect]
     Active Substance: CLOZAPINE
     Dosage: UNK UNK, BID, (25 MILLIGRAM MORNING AND 250 MILLIGRAM AT NIGHT FOR 2 DAYS)
     Route: 048
     Dates: start: 20241013
  3. CLOZARIL [Suspect]
     Active Substance: CLOZAPINE
     Dosage: UNK UNK, BID, (50 MILLIGRAM MORNING AND 250 MILLIGRAM AT NIGHT FOR 2 DAYS)
     Route: 048
     Dates: start: 20241015
  4. CLOZARIL [Suspect]
     Active Substance: CLOZAPINE
     Dosage: UNK UNK, BID, (25 MILLIGRAM MORNING AND 250 MILLIGRAM AT NIGHT)
     Route: 048
     Dates: start: 20241017

REACTIONS (3)
  - Pulmonary embolism [Unknown]
  - Malaise [Unknown]
  - Therapy interrupted [Unknown]

NARRATIVE: CASE EVENT DATE: 20241012
